FAERS Safety Report 18341066 (Version 1)
Quarter: 2020Q4

REPORT INFORMATION
  Report Type: Spontaneous
  Country: HU (occurrence: HU)
  Receive Date: 20201003
  Receipt Date: 20201003
  Transmission Date: 20210113
  Serious: Yes (Life-Threatening, Hospitalization, Other)
  Sender: FDA-Public Use
  Company Number: HU-ACCORD-203868

PATIENT
  Age: 38 Year
  Sex: Female

DRUGS (2)
  1. CLOZAPINE. [Suspect]
     Active Substance: CLOZAPINE
     Route: 048
  2. CLOZAPINE. [Suspect]
     Active Substance: CLOZAPINE
     Dosage: MAINTENANCE DOSE
     Route: 048

REACTIONS (8)
  - Sinus tachycardia [Recovered/Resolved]
  - Haemodynamic instability [Recovered/Resolved]
  - Pericarditis [Recovered/Resolved]
  - Toxicity to various agents [Recovered/Resolved]
  - Cardiac tamponade [Recovered/Resolved]
  - Intentional overdose [Unknown]
  - Hypoperfusion [Recovered/Resolved]
  - Coma [Recovered/Resolved]
